FAERS Safety Report 16776080 (Version 1)
Quarter: 2019Q3

REPORT INFORMATION
  Report Type: Spontaneous
  Country: ID (occurrence: ID)
  Receive Date: 20190905
  Receipt Date: 20190905
  Transmission Date: 20191005
  Serious: Yes (Death)
  Sender: FDA-Public Use
  Company Number: PHHY2019ID206233

PATIENT
  Age: 60 Year
  Sex: Male

DRUGS (1)
  1. UPERIO [Suspect]
     Active Substance: SACUBITRIL\VALSARTAN
     Indication: CARDIAC FAILURE
     Dosage: 50 MG, BID
     Route: 065

REACTIONS (2)
  - Hypotension [Fatal]
  - Acute kidney injury [Fatal]
